FAERS Safety Report 21238322 (Version 3)
Quarter: 2022Q4

REPORT INFORMATION
  Report Type: Spontaneous
  Country: US (occurrence: US)
  Receive Date: 20220822
  Receipt Date: 20221122
  Transmission Date: 20230113
  Serious: No
  Sender: FDA-Public Use
  Company Number: US-PFIZER INC-202201049342

PATIENT
  Age: 12 Year
  Sex: Male
  Weight: 52.16 kg

DRUGS (2)
  1. GENOTROPIN [Suspect]
     Active Substance: SOMATROPIN
     Indication: Short stature
     Dosage: 2.2 MG, DAILY
  2. SUPPRELIN [Concomitant]
     Active Substance: HISTRELIN ACETATE
     Indication: Growth hormone deficiency
     Dosage: UNK
     Dates: start: 202204

REACTIONS (4)
  - Device use error [Unknown]
  - Device physical property issue [Unknown]
  - Device difficult to use [Unknown]
  - Poor quality device used [Unknown]
